FAERS Safety Report 4805451-9 (Version None)
Quarter: 2005Q4

REPORT INFORMATION
  Report Type: 
  Country: None (occurrence: None)
  Receive Date: 20051018
  Receipt Date: 20051004
  Transmission Date: 20060501
  Serious: Yes (Hospitalization)
  Sender: FDA-Public Use
  Company Number: 12576

PATIENT
  Age: 74 Year
  Sex: Male

DRUGS (3)
  1. METHOTREXATE [Suspect]
     Indication: PLEURAL MESOTHELIOMA
     Dosage: 150 MG QD IV
     Route: 042
     Dates: start: 20050511, end: 20050809
  2. IRINOTECAN HYDROCHLORIDE [Concomitant]
  3. DOXORUBICIN HCL [Concomitant]

REACTIONS (1)
  - INTERSTITIAL LUNG DISEASE [None]
